FAERS Safety Report 16810568 (Version 1)
Quarter: 2019Q3

REPORT INFORMATION
  Report Type: Spontaneous
  Country: FR (occurrence: FR)
  Receive Date: 20190916
  Receipt Date: 20190916
  Transmission Date: 20191005
  Serious: Yes (Other)
  Sender: FDA-Public Use
  Company Number: FR-MYLANLABS-2019M1085566

PATIENT
  Age: 65 Year
  Sex: Female

DRUGS (3)
  1. NOVONORM [Suspect]
     Active Substance: REPAGLINIDE
     Indication: DIABETES MELLITUS
     Dosage: 3.5 MILLIGRAM
     Route: 048
     Dates: start: 20190307
  2. IMUREL                             /00001501/ [Suspect]
     Active Substance: AZATHIOPRINE SODIUM
     Indication: DIFFUSE VASCULITIS
     Dosage: 100 MILLIGRAM, QD
     Route: 048
     Dates: start: 20190307
  3. PREDNISONE. [Suspect]
     Active Substance: PREDNISONE
     Indication: DIFFUSE VASCULITIS
     Dosage: 60 MILLIGRAM, QD
     Route: 048
     Dates: start: 20190307

REACTIONS (1)
  - Cholestasis [Not Recovered/Not Resolved]

NARRATIVE: CASE EVENT DATE: 20190404
